FAERS Safety Report 17584160 (Version 1)
Quarter: 2020Q1

REPORT INFORMATION
  Report Type: Spontaneous
  Country: US (occurrence: US)
  Receive Date: 20200326
  Receipt Date: 20200326
  Transmission Date: 20200409
  Serious: No
  Sender: FDA-Public Use
  Company Number: US-MYLANLABS-2020M1025509

PATIENT
  Age: 56 Year
  Sex: Male
  Weight: 118 kg

DRUGS (1)
  1. WIXELA INHUB [Suspect]
     Active Substance: FLUTICASONE PROPIONATE\SALMETEROL XINAFOATE
     Indication: NASOPHARYNGITIS
     Dosage: ONE INHALATION TWICE DAILY
     Route: 055
     Dates: start: 20200303, end: 20200304

REACTIONS (2)
  - Device use issue [Recovering/Resolving]
  - Off label use [Not Recovered/Not Resolved]

NARRATIVE: CASE EVENT DATE: 20200304
